FAERS Safety Report 25602902 (Version 2)
Quarter: 2025Q3

REPORT INFORMATION
  Report Type: Spontaneous
  Country: CH (occurrence: CH)
  Receive Date: 20250724
  Receipt Date: 20250924
  Transmission Date: 20251020
  Serious: Yes (Death)
  Sender: SANOFI AVENTIS
  Company Number: CH-DialogSolutions-SAAVPROD-PI803126-C4

PATIENT
  Sex: Male

DRUGS (1)
  1. DOCETAXEL [Suspect]
     Active Substance: DOCETAXEL
     Indication: Prostate cancer metastatic

REACTIONS (2)
  - Blood disorder [Fatal]
  - Lymphatic disorder [Fatal]
